FAERS Safety Report 6722731-0 (Version None)
Quarter: 2010Q2

REPORT INFORMATION
  Report Type: 
  Country: None (occurrence: None)
  Receive Date: 20100512
  Receipt Date: 20100511
  Transmission Date: 20101027
  Serious: Yes (Disabling)
  Sender: FDA-Public Use
  Company Number: US-MERCK-0812USA04686

PATIENT
  Age: 44 Year
  Sex: Female
  Weight: 79 kg

DRUGS (14)
  1. FOSAMAX [Suspect]
     Indication: OSTEOPOROSIS
     Route: 048
     Dates: start: 20060401
  2. FOSAMAX [Suspect]
     Route: 048
     Dates: start: 20051101
  3. FOSAMAX [Suspect]
     Indication: OSTEOPENIA
     Route: 048
     Dates: start: 20060401
  4. FOSAMAX [Suspect]
     Route: 048
     Dates: start: 20051101
  5. FOSAMAX PLUS D [Suspect]
     Indication: OSTEOPOROSIS
     Route: 065
  6. INDERAL [Concomitant]
     Indication: MIGRAINE
     Route: 065
     Dates: start: 19910901
  7. INDERAL [Concomitant]
     Indication: MITRAL VALVE PROLAPSE
     Route: 065
     Dates: start: 19910901
  8. IMITREX [Concomitant]
     Indication: MIGRAINE
     Route: 065
     Dates: start: 19960901
  9. IMITREX [Concomitant]
     Indication: HEADACHE
     Route: 065
     Dates: start: 19960901
  10. ZOLOFT [Concomitant]
     Indication: ANXIETY DISORDER
     Route: 048
  11. PREMARIN [Concomitant]
     Indication: HORMONE REPLACEMENT THERAPY
     Route: 048
  12. CALTRATE [Concomitant]
     Indication: OSTEOPENIA
     Route: 065
     Dates: start: 20041001
  13. ATIVAN [Concomitant]
     Indication: ANXIETY
     Route: 065
  14. VITAMIN D (UNSPECIFIED) [Concomitant]
     Indication: OSTEOPOROSIS
     Route: 065

REACTIONS (21)
  - ANXIETY [None]
  - CALCINOSIS [None]
  - CONJUNCTIVITIS [None]
  - DECREASED APPETITE [None]
  - DEPRESSION [None]
  - DYSPNOEA [None]
  - FALL [None]
  - FATIGUE [None]
  - GINGIVAL BLEEDING [None]
  - HYPERLIPIDAEMIA [None]
  - JAW DISORDER [None]
  - MIGRAINE [None]
  - OSTEONECROSIS OF JAW [None]
  - PAIN IN EXTREMITY [None]
  - PERITONEAL DISORDER [None]
  - SKIN LACERATION [None]
  - TEMPOROMANDIBULAR JOINT SYNDROME [None]
  - TOOTH ABSCESS [None]
  - TOOTH DISORDER [None]
  - TOOTH FRACTURE [None]
  - UPPER LIMB FRACTURE [None]
